FAERS Safety Report 6030220-4 (Version None)
Quarter: 2009Q1

REPORT INFORMATION
  Report Type: 
  Country: None (occurrence: None)
  Receive Date: 20090107
  Receipt Date: 20080822
  Transmission Date: 20090719
  Serious: No
  Sender: FDA-Public Use
  Company Number: US-BAYER-200813532BCC

PATIENT
  Age: 61 Year
  Sex: Female
  Weight: 67 kg

DRUGS (9)
  1. ALEVE [Suspect]
     Indication: ANALGESIA
     Dosage: TOTAL DAILY DOSE: 440 MG  UNIT DOSE: 220 MG
     Dates: start: 19960101
  2. ADVAIR DISKUS 250/50 [Concomitant]
  3. ALTACE [Concomitant]
  4. PREMPRO [Concomitant]
  5. ASPIRIN [Concomitant]
     Route: 048
  6. FLONASE [Concomitant]
  7. ALLEGRA [Concomitant]
     Route: 048
  8. MUCINEX [Concomitant]
  9. CENTRUM SILVER [Concomitant]

REACTIONS (1)
  - DYSPEPSIA [None]
